FAERS Safety Report 5324317-1 (Version None)
Quarter: 2007Q2

REPORT INFORMATION
  Report Type: 
  Country: None (occurrence: None)
  Receive Date: 20070514
  Receipt Date: 20070509
  Transmission Date: 20071010
  Serious: Yes (Other)
  Sender: FDA-Public Use
  Company Number: GB-BOEHRINGER INGELHEIM PHARMACEUTICALS, INC.-2007-UK-01510UK

PATIENT
  Sex: Female

DRUGS (1)
  1. VIRAMUNE [Suspect]

REACTIONS (4)
  - CIRCULATORY COLLAPSE [None]
  - HYPERSENSITIVITY [None]
  - PYREXIA [None]
  - VOMITING [None]
